FAERS Safety Report 20205969 (Version 1)
Quarter: 2021Q4

REPORT INFORMATION
  Report Type: Spontaneous
  Country: US (occurrence: None)
  Receive Date: 20211217
  Receipt Date: 20211217
  Transmission Date: 20220303
  Serious: No
  Sender: FDA-Public Use
  Company Number: None

PATIENT
  Age: 42 Year
  Sex: Female
  Weight: 103.5 kg

DRUGS (16)
  1. PIQRAY [Suspect]
     Active Substance: ALPELISIB
     Indication: Colon cancer
     Dosage: FREQUENCY : DAILY;?
     Route: 048
     Dates: start: 20211019
  2. FASLODEX [Concomitant]
     Active Substance: FULVESTRANT
  3. BUPROPION [Concomitant]
     Active Substance: BUPROPION
  4. DEXAMETHASONE [Concomitant]
     Active Substance: DEXAMETHASONE
  5. TRULICITY [Concomitant]
     Active Substance: DULAGLUTIDE
  6. EXEMESTANE [Concomitant]
     Active Substance: EXEMESTANE
  7. GLIMEPIRIDE [Concomitant]
     Active Substance: GLIMEPIRIDE
  8. Lidocaine viscous 2% [Concomitant]
  9. VYVANSE [Concomitant]
     Active Substance: LISDEXAMFETAMINE DIMESYLATE
  10. LISINOPRIL [Concomitant]
     Active Substance: LISINOPRIL
  11. LYRICA [Concomitant]
     Active Substance: PREGABALIN
  12. Promethazine 12.5mg [Concomitant]
  13. SINGULAIR [Concomitant]
     Active Substance: MONTELUKAST SODIUM
  14. VALACYCLOVIR [Concomitant]
     Active Substance: VALACYCLOVIR HYDROCHLORIDE
  15. Stool softener 100mg [Concomitant]
  16. IBUPROFEN [Concomitant]
     Active Substance: IBUPROFEN

REACTIONS (1)
  - Blood glucose increased [None]

NARRATIVE: CASE EVENT DATE: 20211216
